FAERS Safety Report 8303604-9 (Version None)
Quarter: 2012Q2

REPORT INFORMATION
  Report Type: 
  Country: None (occurrence: None)
  Receive Date: 20120416
  Receipt Date: 20120405
  Transmission Date: 20120825
  Serious: Yes (Life-Threatening, Hospitalization)
  Sender: FDA-Public Use
  Company Number: AEDEU201200122

PATIENT
  Age: 53 Year
  Sex: Male
  Weight: 88.7 kg

DRUGS (14)
  1. GAMUNEX [Suspect]
  2. GAMUNEX [Suspect]
  3. PANTOPRAZOLE [Concomitant]
  4. GAMUNEX [Suspect]
  5. CYMBALTA [Concomitant]
  6. GAMUNEX [Suspect]
  7. DEKRISTOL [Concomitant]
  8. LYRICA [Concomitant]
  9. GAMUNEX [Suspect]
     Indication: CHRONIC INFLAMMATORY DEMYELINATING POLYRADICULONEUROPATHY
     Dosage: 60 GM;Q3W;IV
     Route: 042
     Dates: start: 20110505, end: 20120106
  10. GAMUNEX [Suspect]
  11. GAMUNEX [Suspect]
  12. GAMUNEX [Suspect]
  13. ATACAND HCT [Concomitant]
  14. AMLODIPINE [Concomitant]

REACTIONS (13)
  - RASH [None]
  - MALAISE [None]
  - BODY TEMPERATURE INCREASED [None]
  - CRYOGLOBULINAEMIA [None]
  - RAYNAUD'S PHENOMENON [None]
  - CHILLS [None]
  - VASCULITIS NECROTISING [None]
  - RENAL FAILURE ACUTE [None]
  - NORMOCHROMIC NORMOCYTIC ANAEMIA [None]
  - CONDITION AGGRAVATED [None]
  - GLOMERULONEPHRITIS PROLIFERATIVE [None]
  - LEUKOCYTOCLASTIC VASCULITIS [None]
  - BLOOD PRESSURE INCREASED [None]
